FAERS Safety Report 9824987 (Version 1)
Quarter: 2014Q1

REPORT INFORMATION
  Report Type: Spontaneous
  Country: US (occurrence: US)
  Receive Date: 20140117
  Receipt Date: 20140117
  Transmission Date: 20141002
  Serious: Yes (Other)
  Sender: FDA-Public Use
  Company Number: US-JNJFOC-20140104724

PATIENT
  Age: 59 Year
  Sex: Male
  Weight: 170.1 kg

DRUGS (7)
  1. XARELTO [Suspect]
     Indication: PULMONARY EMBOLISM
     Route: 048
     Dates: start: 20121215
  2. XARELTO [Suspect]
     Indication: PULMONARY EMBOLISM
     Route: 048
     Dates: end: 20140108
  3. LOSARTAN [Concomitant]
     Indication: BLOOD PRESSURE
     Route: 048
  4. SPIRONOLACTONE [Concomitant]
     Indication: FLUID RETENTION
     Route: 048
     Dates: start: 2012
  5. SPIRONOLACTONE [Concomitant]
     Indication: BLOOD PRESSURE
     Route: 048
     Dates: start: 2012
  6. SYMBICORT [Concomitant]
     Indication: ASTHMA
     Dosage: 160/4.5MG/- RESPIRATORY
     Route: 065
  7. METFORMIN [Concomitant]
     Indication: TYPE 2 DIABETES MELLITUS
     Dosage: 160/4.5MG/- RESPIRATORY
     Route: 048

REACTIONS (2)
  - Bursitis [Not Recovered/Not Resolved]
  - Arthralgia [Not Recovered/Not Resolved]
